FAERS Safety Report 4506904-3 (Version None)
Quarter: 2004Q4

REPORT INFORMATION
  Report Type: 
  Country: None (occurrence: None)
  Receive Date: 20041117
  Receipt Date: 20041104
  Transmission Date: 20050328
  Serious: Yes (Hospitalization, Other)
  Sender: FDA-Public Use
  Company Number: 2004089701

PATIENT
  Sex: Male

DRUGS (4)
  1. EPANUTIN INJECTABLE (PHENYTOIN SODIUM) [Suspect]
     Indication: EPILEPSY
  2. VALPROATE SODIUM [Suspect]
     Indication: ILL-DEFINED DISORDER
     Dosage: 2400 MG (800 MG, 3 IN 1 D), INTRAVENOUS
     Route: 042
  3. CLONAZEPAM [Concomitant]
  4. DEXAMETHASONE [Concomitant]

REACTIONS (2)
  - ANTICONVULSANT DRUG LEVEL DECREASED [None]
  - CONVULSION [None]
